FAERS Safety Report 5175362-0 (Version None)
Quarter: 2006Q4

REPORT INFORMATION
  Report Type: 
  Country: None (occurrence: None)
  Receive Date: 20061215
  Receipt Date: 20061204
  Transmission Date: 20070319
  Serious: Yes (Other)
  Sender: FDA-Public Use
  Company Number: PHFR2006GB03574

PATIENT
  Sex: Male

DRUGS (1)
  1. VOLTAREN [Suspect]
     Route: 065

REACTIONS (1)
  - ANGINA PECTORIS [None]
